FAERS Safety Report 5148977-3 (Version None)
Quarter: 2006Q4

REPORT INFORMATION
  Report Type: 
  Country: None (occurrence: None)
  Receive Date: 20061108
  Receipt Date: 20061026
  Transmission Date: 20070319
  Serious: Yes (Other)
  Sender: FDA-Public Use
  Company Number: 3387

PATIENT
  Age: 30 Year
  Sex: Female

DRUGS (1)
  1. AMNESTEEM [Suspect]
     Dosage: 40 MG, BID, PO
     Route: 048
     Dates: start: 20060515, end: 20061023

REACTIONS (3)
  - ABORTION SPONTANEOUS [None]
  - DRUG EXPOSURE DURING PREGNANCY [None]
  - PREGNANCY [None]
